FAERS Safety Report 8690130 (Version 2)
Quarter: 2014Q4

REPORT INFORMATION
  Report Type: Spontaneous
  Country: US (occurrence: US)
  Receive Date: 20120727
  Receipt Date: 20141010
  Transmission Date: 20150529
  Serious: No
  Sender: FDA-Public Use
  Company Number: US-ASTRAZENECA-2012SE13437

PATIENT
  Age: 47 Year
  Sex: Female
  Weight: 69.4 kg

DRUGS (9)
  1. DIAZEPAM. [Concomitant]
     Active Substance: DIAZEPAM
     Indication: NERVOUSNESS
     Route: 048
  2. TRAMADOLE [Concomitant]
     Indication: BACK PAIN
     Route: 048
  3. BENADRYL OT [Concomitant]
     Indication: PRURITUS
     Route: 048
  4. SEROQUEL XR [Suspect]
     Active Substance: QUETIAPINE FUMARATE
     Indication: INSOMNIA
     Route: 048
  5. MORPHINE [Concomitant]
     Active Substance: MORPHINE
     Indication: BACK PAIN
     Route: 048
  6. NEUROTIN [Concomitant]
     Indication: BACK PAIN
     Route: 048
  7. VICKS NYQUIL [Concomitant]
     Active Substance: ACETAMINOPHEN\DEXTROMETHORPHAN HYDROBROMIDE\DOXYLAMINE SUCCINATE
     Indication: UPPER RESPIRATORY TRACT INFECTION
     Dosage: AS REQUIRED
     Route: 048
  8. PROTONIX [Concomitant]
     Active Substance: PANTOPRAZOLE SODIUM
  9. PERCOCET [Concomitant]
     Active Substance: ACETAMINOPHEN\OXYCODONE HYDROCHLORIDE
     Indication: PAIN
     Dosage: 10/3.2 5MG EVERY 4 TO 6 HOURS
     Route: 048

REACTIONS (12)
  - Activities of daily living impaired [Unknown]
  - Back disorder [Unknown]
  - Insomnia [Unknown]
  - Adverse drug reaction [Unknown]
  - Migraine [Unknown]
  - Arthritis [Unknown]
  - Hypertension [Unknown]
  - Somnolence [Unknown]
  - Middle insomnia [Unknown]
  - Off label use [Unknown]
  - Upper respiratory tract infection [Unknown]
  - Drug dose omission [Unknown]
